FAERS Safety Report 8991362 (Version 1)
Quarter: 2012Q4

REPORT INFORMATION
  Report Type: 
  Country: CH (occurrence: CH)
  Receive Date: 20121229
  Receipt Date: 20121229
  Transmission Date: 20130627
  Serious: Yes (Death, Hospitalization)
  Sender: FDA-Public Use
  Company Number: CH-BAXTER-2012BAX028102

PATIENT
  Age: 76 Year
  Sex: Female

DRUGS (9)
  1. ENDOXAN 1 G [Suspect]
     Indication: WEGENER^S GRANULOMATOSIS
     Route: 065
     Dates: start: 20110511
  2. PREDNISONE [Suspect]
     Indication: DRUG USE FOR UNKNOWN INDICATION
     Route: 065
     Dates: start: 20110506
  3. MABTHERA [Suspect]
     Indication: DRUG USE FOR UNKNOWN INDICATION
     Route: 065
     Dates: start: 20110606, end: 20110706
  4. LANTUS [Concomitant]
     Indication: DRUG USE FOR UNKNOWN INDICATION
  5. SINTROM [Concomitant]
     Indication: DRUG USE FOR UNKNOWN INDICATION
     Route: 065
  6. BELOC-ZOC [Concomitant]
     Indication: DRUG USE FOR UNKNOWN INDICATION
  7. ASPIRIN CARDIO [Concomitant]
     Indication: DRUG USE FOR UNKNOWN INDICATION
  8. NEXIUM [Concomitant]
     Indication: DRUG USE FOR UNKNOWN INDICATION
  9. SIMVASTATINE [Concomitant]
     Indication: DRUG USE FOR UNKNOWN INDICATION

REACTIONS (6)
  - Sepsis [Fatal]
  - Urosepsis [None]
  - Klebsiella bacteraemia [None]
  - General physical health deterioration [None]
  - Depressed level of consciousness [None]
  - Somnolence [None]
